FAERS Safety Report 7120066-8 (Version None)
Quarter: 2010Q4

REPORT INFORMATION
  Report Type: 
  Country: None (occurrence: None)
  Receive Date: 20101123
  Receipt Date: 20101116
  Transmission Date: 20110411
  Serious: Yes (Other)
  Sender: FDA-Public Use
  Company Number: US-PFIZER INC-2010152271

PATIENT
  Sex: Female
  Weight: 97.506 kg

DRUGS (2)
  1. EFFEXOR XR [Suspect]
     Dosage: 150 MG, 2X/DAY
     Route: 048
  2. IBUPROFEN [Concomitant]
     Dosage: UNK

REACTIONS (1)
  - NERVE INJURY [None]
